FAERS Safety Report 13395538 (Version 1)
Quarter: 2017Q2

REPORT INFORMATION
  Report Type: Spontaneous
  Country: US (occurrence: US)
  Receive Date: 20170403
  Receipt Date: 20170403
  Transmission Date: 20170830
  Serious: No
  Sender: FDA-Public Use
  Company Number: US-BAYER-2017-062880

PATIENT
  Age: 67 Year
  Sex: Female
  Weight: 68 kg

DRUGS (1)
  1. MIRALAX [Suspect]
     Active Substance: POLYETHYLENE GLYCOL 3350
     Indication: GASTROINTESTINAL DISORDER
     Dosage: ONE PACKET WITH 4 OUNCES OF JUICE
     Route: 048
     Dates: start: 20170325, end: 20170331

REACTIONS (3)
  - Product use issue [None]
  - Off label use [Unknown]
  - Drug dose omission [None]

NARRATIVE: CASE EVENT DATE: 201703
